FAERS Safety Report 8534981-1 (Version None)
Quarter: 2012Q3

REPORT INFORMATION
  Report Type: 
  Country: None (occurrence: None)
  Receive Date: 20120724
  Receipt Date: 20120718
  Transmission Date: 20120928
  Serious: No
  Sender: FDA-Public Use
  Company Number: US-PFIZER INC-2012176203

PATIENT
  Sex: Male
  Weight: 64.399 kg

DRUGS (2)
  1. DOXAZOSIN MESYLATE [Suspect]
     Dosage: UNK
  2. TERAZOSIN HYDROCHLORIDE [Suspect]
     Dosage: UNK

REACTIONS (3)
  - DIARRHOEA [None]
  - DRUG HYPERSENSITIVITY [None]
  - DIZZINESS [None]
